FAERS Safety Report 15904084 (Version 1)
Quarter: 2019Q1

REPORT INFORMATION
  Report Type: Spontaneous
  Country: CA (occurrence: CA)
  Receive Date: 20190204
  Receipt Date: 20190204
  Transmission Date: 20190417
  Serious: Yes (Other)
  Sender: FDA-Public Use
  Company Number: CA-ROCHE-2254690

PATIENT
  Age: 25 Year
  Sex: Female

DRUGS (11)
  1. VENTOLIN [Concomitant]
     Active Substance: ALBUTEROL SULFATE
     Indication: ASTHMA
     Dosage: 2 DF, PRN
     Route: 055
  2. XOLAIR [Suspect]
     Active Substance: OMALIZUMAB
     Route: 058
     Dates: start: 20170719
  3. SINGULAIR [Concomitant]
     Active Substance: MONTELUKAST SODIUM
     Indication: ASTHMA
     Dosage: 2 DF, QD
     Route: 048
     Dates: start: 201612
  4. XOLAIR [Suspect]
     Active Substance: OMALIZUMAB
     Route: 058
  5. XOLAIR [Suspect]
     Active Substance: OMALIZUMAB
     Route: 058
     Dates: start: 20180319
  6. XOLAIR [Suspect]
     Active Substance: OMALIZUMAB
     Route: 058
     Dates: start: 20180115
  7. XOLAIR [Suspect]
     Active Substance: OMALIZUMAB
     Route: 058
     Dates: start: 20171123
  8. XOLAIR [Suspect]
     Active Substance: OMALIZUMAB
     Indication: ASTHMA
     Route: 058
     Dates: start: 20170425
  9. XOLAIR [Suspect]
     Active Substance: OMALIZUMAB
     Route: 058
     Dates: start: 20181003
  10. XOLAIR [Suspect]
     Active Substance: OMALIZUMAB
     Route: 058
     Dates: start: 20181227
  11. XOLAIR [Suspect]
     Active Substance: OMALIZUMAB
     Route: 058
     Dates: start: 20180612

REACTIONS (22)
  - Cough [Not Recovered/Not Resolved]
  - Dust allergy [Unknown]
  - Malaise [Recovering/Resolving]
  - Dyspnoea [Recovered/Resolved]
  - Sleep disorder [Unknown]
  - Chest discomfort [Unknown]
  - Pain in extremity [Unknown]
  - Discomfort [Unknown]
  - Throat clearing [Unknown]
  - Rhinorrhoea [Not Recovered/Not Resolved]
  - Wheezing [Unknown]
  - Respiratory distress [Unknown]
  - Lower respiratory tract infection [Recovering/Resolving]
  - Perfume sensitivity [Unknown]
  - Insomnia [Unknown]
  - Asthma [Unknown]
  - Nasopharyngitis [Not Recovered/Not Resolved]
  - Kidney infection [Unknown]
  - Gastrointestinal disorder [Recovering/Resolving]
  - Oropharyngeal pain [Not Recovered/Not Resolved]
  - Sensitivity to weather change [Unknown]
  - Weight decreased [Unknown]

NARRATIVE: CASE EVENT DATE: 20170426
